FAERS Safety Report 17295712 (Version 1)
Quarter: 2020Q1

REPORT INFORMATION
  Report Type: Report from Study
  Country: IT (occurrence: IT)
  Receive Date: 20200121
  Receipt Date: 20200121
  Transmission Date: 20200409
  Serious: Yes (Congenital Anomaly, Other)
  Sender: FDA-Public Use
  Company Number: IT-VISTAPHARM, INC.-VER202001-000140

PATIENT
  Age: 40 Week
  Sex: Male
  Weight: 3.8 kg

DRUGS (2)
  1. CARBAMAZEPINE. [Suspect]
     Active Substance: CARBAMAZEPINE
     Dosage: UNKNOWN
     Route: 064
  2. VALPROIC ACID. [Suspect]
     Active Substance: VALPROIC ACID
     Dosage: UNKNOWN
     Route: 064

REACTIONS (2)
  - Inguinal hernia [Not Recovered/Not Resolved]
  - Foetal exposure during pregnancy [Unknown]
